FAERS Safety Report 9502941 (Version 4)
Quarter: 2013Q3

REPORT INFORMATION
  Report Type: Spontaneous
  Country: JP (occurrence: JP)
  Receive Date: 20130906
  Receipt Date: 20130913
  Transmission Date: 20140515
  Serious: Yes (Death, Hospitalization, Other)
  Sender: FDA-Public Use
  Company Number: PHHY2013JP092209

PATIENT
  Age: 92 Year
  Sex: Male
  Weight: 47.6 kg

DRUGS (8)
  1. EXELON PATCH [Suspect]
     Indication: DEMENTIA ALZHEIMER^S TYPE
     Dosage: 4.5 MG,DAILY
     Route: 062
     Dates: start: 20121218, end: 20130114
  2. EXELON PATCH [Suspect]
     Dosage: 9 MG, DAILY
     Route: 062
     Dates: start: 20130115, end: 20130211
  3. EXELON PATCH [Suspect]
     Dosage: 13.5 MG, DAILY
     Route: 062
     Dates: start: 20130212, end: 20130304
  4. EXELON PATCH [Suspect]
     Dosage: 18 MG, DAILY
     Route: 062
     Dates: start: 20130305, end: 20130816
  5. FLIVAS [Concomitant]
     Dosage: 25 MG, UNK
     Route: 048
  6. AMARYL [Concomitant]
     Dosage: 3 MG, UNK
     Route: 048
  7. JANUVIA [Concomitant]
     Dosage: 100 MG, UNK
     Route: 048
  8. LEVOTHYROXINE NA [Concomitant]
     Dosage: 12.5 MG, UNK
     Route: 048

REACTIONS (7)
  - Atrioventricular block complete [Fatal]
  - Asthenia [Fatal]
  - Bradycardia [Fatal]
  - Pneumonia aspiration [Not Recovered/Not Resolved]
  - Aspiration [Unknown]
  - Dyspnoea [Unknown]
  - Vomiting [Unknown]
